FAERS Safety Report 21065289 (Version 1)
Quarter: 2022Q3

REPORT INFORMATION
  Report Type: Spontaneous
  Country: US (occurrence: None)
  Receive Date: 20220711
  Receipt Date: 20220711
  Transmission Date: 20221026
  Serious: No
  Sender: FDA-Public Use
  Company Number: 2022A237395

PATIENT
  Sex: Male
  Weight: 96.2 kg

DRUGS (2)
  1. FASENRA [Suspect]
     Active Substance: BENRALIZUMAB
     Indication: Asthma
     Dosage: MONTHLY
     Route: 058
     Dates: start: 20220516
  2. FASENRA [Suspect]
     Active Substance: BENRALIZUMAB
     Indication: Asthma
     Dosage: MONTHLY
     Route: 058
     Dates: start: 20220616

REACTIONS (2)
  - Tongue discolouration [Not Recovered/Not Resolved]
  - Taste disorder [Not Recovered/Not Resolved]
